FAERS Safety Report 13162242 (Version 6)
Quarter: 2018Q1

REPORT INFORMATION
  Report Type: Report from Study
  Country: GB (occurrence: GB)
  Receive Date: 20170130
  Receipt Date: 20180309
  Transmission Date: 20180508
  Serious: Yes (Other)
  Sender: FDA-Public Use
  Company Number: GB-BRISTOL-MYERS SQUIBB COMPANY-BMS-2017-005555

PATIENT
  Sex: Female

DRUGS (1)
  1. ABATACEPT [Suspect]
     Active Substance: ABATACEPT
     Indication: RHEUMATOID ARTHRITIS
     Dosage: 125 MG, QWK
     Route: 058
     Dates: start: 20150522

REACTIONS (6)
  - Pain [Unknown]
  - Somnolence [Unknown]
  - Drug dose omission [Unknown]
  - Limb operation [Unknown]
  - Gait disturbance [Unknown]
  - Thermal burn [Not Recovered/Not Resolved]
